FAERS Safety Report 12781834 (Version 1)
Quarter: 2016Q3

REPORT INFORMATION
  Report Type: Spontaneous
  Country: IN (occurrence: IN)
  Receive Date: 20160926
  Receipt Date: 20160926
  Transmission Date: 20161109
  Serious: Yes (Hospitalization, Other)
  Sender: FDA-Public Use
  Company Number: IN-009507513-1609IND009589

PATIENT
  Age: 28 Year
  Sex: Female

DRUGS (3)
  1. GONADOTROPIN, CHORIONIC [Suspect]
     Active Substance: CHORIOGONADOTROPIN ALFA
     Indication: OVULATION INDUCTION
     Dosage: 5000 IU 1 DAY BEFORE HER SYMPTOMS.
  2. FOLLITROPIN BETA [Suspect]
     Active Substance: FOLLITROPIN
     Indication: OVULATION INDUCTION
     Dosage: ON DAYS 7-9 OF THE CYCLE.
  3. CLOMIPHENE CITRATE. [Suspect]
     Active Substance: CLOMIPHENE CITRATE
     Indication: OVULATION INDUCTION
     Dosage: 100 MG, ON DAYS 2-6 OF HER MENSTRUAL CYCLE.

REACTIONS (2)
  - Acute kidney injury [Recovering/Resolving]
  - Ovarian hyperstimulation syndrome [Recovering/Resolving]
